FAERS Safety Report 8082518-6 (Version None)
Quarter: 2012Q1

REPORT INFORMATION
  Report Type: 
  Country: None (occurrence: None)
  Receive Date: 20120127
  Receipt Date: 20110218
  Transmission Date: 20120608
  Serious: No
  Sender: FDA-Public Use
  Company Number: US-ABBOTT-11P-163-0706716-00

PATIENT
  Sex: Male
  Weight: 99.88 kg

DRUGS (2)
  1. TOPICAL STEROID CREAMS [Concomitant]
     Indication: PSORIASIS
  2. HUMIRA [Suspect]
     Indication: PSORIASIS
     Dates: start: 20110115

REACTIONS (2)
  - NAUSEA [None]
  - FATIGUE [None]
